FAERS Safety Report 8242229-0 (Version None)
Quarter: 2012Q1

REPORT INFORMATION
  Report Type: 
  Country: None (occurrence: None)
  Receive Date: 20120329
  Receipt Date: 20120315
  Transmission Date: 20120608
  Serious: Yes (Hospitalization)
  Sender: FDA-Public Use
  Company Number: TW-CELGENEUS-153-50794-11122222

PATIENT
  Sex: Female

DRUGS (6)
  1. GLUCOPHAGE [Concomitant]
     Indication: DIABETES MELLITUS
     Dosage: 150 MILLIGRAM
     Route: 065
     Dates: start: 20090101
  2. NORVASC [Concomitant]
     Indication: HYPERTENSION
     Dosage: 5 MILLIGRAM
     Route: 065
     Dates: start: 20090101
  3. ALLOPURINOL [Concomitant]
     Dosage: 100 MILLIGRAM
     Route: 065
     Dates: start: 20110701
  4. IRBESARTAN [Concomitant]
     Indication: HYPERTENSION
     Dosage: 150 MILLIGRAM
     Route: 065
     Dates: start: 20090101
  5. VIDAZA [Suspect]
     Route: 065
     Dates: start: 20110530
  6. VIDAZA [Suspect]
     Dosage: 150 MILLIGRAM
     Route: 065
     Dates: start: 20111114, end: 20111122

REACTIONS (2)
  - COLON CANCER [None]
  - HAEMATOCHEZIA [None]
